FAERS Safety Report 8988302 (Version 3)
Quarter: 2013Q1

REPORT INFORMATION
  Report Type: Report from Study
  Country: JP (occurrence: JP)
  Receive Date: 20121227
  Receipt Date: 20130325
  Transmission Date: 20140127
  Serious: Yes (Death)
  Sender: FDA-Public Use
  Company Number: JP-ROCHE-1169296

PATIENT
  Sex: Male
  Weight: 60 kg

DRUGS (6)
  1. OMALIZUMAB [Suspect]
     Indication: ASTHMA
     Route: 058
     Dates: start: 20101116, end: 20101116
  2. ADOAIR [Concomitant]
     Route: 065
     Dates: start: 20100601
  3. ASMANEX [Concomitant]
     Route: 065
     Dates: start: 20100601
  4. SINGULAIR [Concomitant]
     Route: 065
     Dates: start: 20100601
  5. THEO-DUR [Concomitant]
     Route: 065
     Dates: start: 20100601
  6. MUCOSOLATE [Concomitant]
     Route: 065
     Dates: start: 20100601

REACTIONS (1)
  - Dysphagia [Fatal]
